FAERS Safety Report 24802987 (Version 3)
Quarter: 2025Q1

REPORT INFORMATION
  Report Type: Report from Study
  Country: US (occurrence: US)
  Receive Date: 20250103
  Receipt Date: 20250130
  Transmission Date: 20250409
  Serious: Yes (Other)
  Sender: ROCHE
  Company Number: US-ROCHE-10000168405

PATIENT
  Age: 64 Year
  Sex: Female
  Weight: 83.46 kg

DRUGS (21)
  1. OCREVUS [Suspect]
     Active Substance: OCRELIZUMAB
     Indication: Multiple sclerosis
     Dosage: 920 MG/23ML.?DATE OF TREATMENT: 01/DEC/2023
     Route: 058
     Dates: start: 2017
  2. DESLORATADINE\PSEUDOEPHEDRINE SULFATE [Concomitant]
     Active Substance: DESLORATADINE\PSEUDOEPHEDRINE SULFATE
  3. DECADRON [Concomitant]
     Active Substance: DEXAMETHASONE
  4. ALBUTEROL SULFATE [Concomitant]
     Active Substance: ALBUTEROL SULFATE
  5. ASPIRIN [Concomitant]
     Active Substance: ASPIRIN
  6. LIPITOR [Concomitant]
     Active Substance: ATORVASTATIN CALCIUM
  7. AZELAIC ACID [Concomitant]
     Active Substance: AZELAIC ACID
  8. ASTELIN [Concomitant]
     Active Substance: AZELASTINE HYDROCHLORIDE
  9. CETIRIZINE HYDROCHLORIDE [Concomitant]
     Active Substance: CETIRIZINE HYDROCHLORIDE
  10. CLINDAMYCIN HYDROCHLORIDE [Concomitant]
     Active Substance: CLINDAMYCIN HYDROCHLORIDE
  11. CLOBETASOL PROPIONATE [Concomitant]
     Active Substance: CLOBETASOL PROPIONATE
  12. DRISDOL [Concomitant]
     Active Substance: ERGOCALCIFEROL
  13. LEXAPRO [Concomitant]
     Active Substance: ESCITALOPRAM OXALATE
  14. GABAPENTIN [Concomitant]
     Active Substance: GABAPENTIN
  15. PRINIVIL [Concomitant]
     Active Substance: LISINOPRIL
  16. METROGEL [Concomitant]
     Active Substance: METRONIDAZOLE
  17. MINOCYCLINE HYDROCHLORIDE [Concomitant]
     Active Substance: MINOCYCLINE HYDROCHLORIDE
  18. PRILOSEC [Concomitant]
     Active Substance: OMEPRAZOLE MAGNESIUM
  19. NASACORT [Concomitant]
     Active Substance: TRIAMCINOLONE ACETONIDE
  20. KENALOG [Concomitant]
     Active Substance: TRIAMCINOLONE ACETONIDE
  21. VALTREX [Concomitant]
     Active Substance: VALACYCLOVIR HYDROCHLORIDE

REACTIONS (11)
  - COVID-19 [Unknown]
  - Muscular weakness [Unknown]
  - Multiple sclerosis [Unknown]
  - Chronic sinusitis [Unknown]
  - Constipation [Unknown]
  - Urinary retention [Unknown]
  - Off label use [Unknown]
  - Hyperlipidaemia [Unknown]
  - Hypertension [Unknown]
  - Anxiety [Unknown]
  - Asthenia [Unknown]

NARRATIVE: CASE EVENT DATE: 20210310
